FAERS Safety Report 5847363-8 (Version None)
Quarter: 2008Q3

REPORT INFORMATION
  Report Type: 
  Country: None (occurrence: None)
  Receive Date: 20080813
  Receipt Date: 20080728
  Transmission Date: 20090109
  Serious: Yes (Other)
  Sender: FDA-Public Use
  Company Number: DSA_32221_2008

PATIENT
  Age: 33 Year
  Sex: Male
  Weight: 57 kg

DRUGS (3)
  1. ENALAPRIL MALEATE [Suspect]
     Indication: HYPERTENSION
     Dosage: (5 MG BID)
     Dates: start: 19950101, end: 20050101
  2. BETAXOLOL HYDROCHLORIDE [Suspect]
     Indication: HYPERTENSION
     Dosage: (10 MG FREQUENCY UNKNOWN)
     Dates: start: 19950101, end: 20050101
  3. HYDROCHLOROTHIAZIDE [Suspect]
     Indication: HYPERTENSION
     Dosage: (1X12.5 MG EVERY OTHER DAY)
     Dates: start: 19950101, end: 20050101

REACTIONS (3)
  - BLOOD PRESSURE DECREASED [None]
  - EATING DISORDER [None]
  - WEIGHT DECREASED [None]
